FAERS Safety Report 6681291-3 (Version None)
Quarter: 2010Q2

REPORT INFORMATION
  Report Type: 
  Country: None (occurrence: None)
  Receive Date: 20100414
  Receipt Date: 20100405
  Transmission Date: 20101027
  Serious: Yes (Hospitalization)
  Sender: FDA-Public Use
  Company Number: JP-ROCHE-696825

PATIENT
  Sex: Male

DRUGS (2)
  1. ROCEPHIN [Suspect]
     Indication: SINUSITIS
     Route: 042
     Dates: start: 20100403, end: 20100403
  2. MIDOCIN [Suspect]
     Indication: DRUG USE FOR UNKNOWN INDICATION
     Route: 042

REACTIONS (4)
  - BLOOD PRESSURE DECREASED [None]
  - DRUG ERUPTION [None]
  - FLUSHING [None]
  - PRURITUS [None]
